FAERS Safety Report 4690033-2 (Version None)
Quarter: 2005Q2

REPORT INFORMATION
  Report Type: 
  Country: None (occurrence: None)
  Receive Date: 20050614
  Receipt Date: 20050531
  Transmission Date: 20051028
  Serious: Yes (Other)
  Sender: FDA-Public Use
  Company Number: 2005075669

PATIENT
  Age: 65 Year
  Sex: Male

DRUGS (2)
  1. ZITHROMAX [Suspect]
     Indication: BRONCHITIS ACUTE
     Dosage: 500 MG (500 MG, DAILY), ORAL
     Route: 048
     Dates: start: 20050324, end: 20050326
  2. ACC (ACETYLCYSTEINE) [Concomitant]

REACTIONS (6)
  - FALL [None]
  - HAEMATOMA [None]
  - HYPERHIDROSIS [None]
  - MENTAL DISORDER [None]
  - NAUSEA [None]
  - SYNCOPE [None]
